FAERS Safety Report 18313054 (Version 1)
Quarter: 2020Q3

REPORT INFORMATION
  Report Type: Spontaneous
  Country: US (occurrence: US)
  Receive Date: 20200925
  Receipt Date: 20200925
  Transmission Date: 20201103
  Serious: Yes (Other)
  Sender: FDA-Public Use
  Company Number: US-AMERICAN REGENT INC-2020001965

PATIENT
  Age: 28 Year
  Sex: Female

DRUGS (2)
  1. VENOFER [Suspect]
     Active Substance: IRON SUCROSE
     Indication: ANAEMIA OF PREGNANCY
     Dosage: 2 OR 3 DOSES DURING PREGNANCY (PRIOR TO DELIVERY)
     Route: 065
  2. VENOFER [Suspect]
     Active Substance: IRON SUCROSE
     Dosage: 2 DOSES POST?DELIVERY
     Route: 065

REACTIONS (2)
  - Haemochromatosis [Unknown]
  - Maternal exposure during pregnancy [Unknown]
